FAERS Safety Report 9893540 (Version 2)
Quarter: 2017Q1

REPORT INFORMATION
  Report Type: Report from Study
  Country: ES (occurrence: ES)
  Receive Date: 20140213
  Receipt Date: 20170328
  Transmission Date: 20170429
  Serious: Yes (Death, Other)
  Sender: FDA-Public Use
  Company Number: ES-CELGENEUS-144-21660-14020025

PATIENT

DRUGS (4)
  1. ABRAXANE [Suspect]
     Active Substance: PACLITAXEL
     Indication: BREAST CANCER METASTATIC
     Dosage: 80 MG/M2
     Route: 041
  2. ABRAXANE [Suspect]
     Active Substance: PACLITAXEL
     Dosage: 150 MG/M2
     Route: 041
  3. ABRAXANE [Suspect]
     Active Substance: PACLITAXEL
     Dosage: 150 MG/M2
     Route: 041
  4. ABRAXANE [Suspect]
     Active Substance: PACLITAXEL
     Dosage: 100 MG/M2
     Route: 041

REACTIONS (67)
  - Breast cancer metastatic [Fatal]
  - Cholecystitis acute [Not Recovered/Not Resolved]
  - Febrile neutropenia [Recovered/Resolved]
  - Nail dystrophy [Recovered/Resolved]
  - Peripheral sensory neuropathy [Unknown]
  - Abdominal pain upper [Unknown]
  - Vomiting [Unknown]
  - Herpes zoster [Unknown]
  - Hepatotoxicity [Recovered/Resolved]
  - Diarrhoea [Recovered/Resolved]
  - Neuropathy peripheral [Unknown]
  - Thrombocytopenia [Unknown]
  - Neurotoxicity [Unknown]
  - Epistaxis [Unknown]
  - Anaemia [Unknown]
  - Dry skin [Unknown]
  - Hypocalcaemia [Unknown]
  - Blood glucose decreased [Unknown]
  - Bacteraemia [Unknown]
  - Muscle spasms [Unknown]
  - Asthenia [Recovered/Resolved]
  - Decreased appetite [Recovered/Resolved]
  - Constipation [Unknown]
  - Lymphopenia [Unknown]
  - Pain in extremity [Unknown]
  - Blood creatinine increased [Unknown]
  - Neurotoxicity [Recovered/Resolved]
  - Polyneuropathy [Not Recovered/Not Resolved]
  - Aphonia [Recovered/Resolved]
  - Monocytopenia [Unknown]
  - Muscular weakness [Unknown]
  - Alanine aminotransferase increased [Unknown]
  - Lymphoedema [Unknown]
  - Hypernatraemia [Unknown]
  - Oedema peripheral [Unknown]
  - Blood bilirubin increased [Unknown]
  - Myalgia [Unknown]
  - Blood lactate dehydrogenase increased [Unknown]
  - Blood urea decreased [Unknown]
  - Cough [Unknown]
  - Pyrexia [Not Recovered/Not Resolved]
  - Cellulitis [Recovered/Resolved]
  - Asthenia [Unknown]
  - Nausea [Unknown]
  - Oedema [Unknown]
  - Blood alkaline phosphatase increased [Unknown]
  - Lymphocyte count increased [Unknown]
  - Abdominal pain [Unknown]
  - Arthralgia [Unknown]
  - Death [Fatal]
  - Respiratory failure [Fatal]
  - Neutropenia [Not Recovered/Not Resolved]
  - Gamma-glutamyltransferase increased [Unknown]
  - Alopecia [Unknown]
  - Blood albumin decreased [Unknown]
  - Monocyte count increased [Unknown]
  - Leukopenia [Recovered/Resolved]
  - Onycholysis [Recovered/Resolved]
  - Hyperglycaemia [Recovered/Resolved]
  - Nail disorder [Unknown]
  - Aspartate aminotransferase increased [Unknown]
  - Dysgeusia [Unknown]
  - Hyperproteinaemia [Unknown]
  - Paraesthesia [Unknown]
  - Mucosal inflammation [Unknown]
  - Nasopharyngitis [Unknown]
  - Chest discomfort [Unknown]
